FAERS Safety Report 24753205 (Version 1)
Quarter: 2024Q4

REPORT INFORMATION
  Report Type: Spontaneous
  Country: US (occurrence: US)
  Receive Date: 20241219
  Receipt Date: 20241219
  Transmission Date: 20250114
  Serious: No
  Sender: PACIRA
  Company Number: US-ORG100016242-2024000047

PATIENT
  Age: 60 Year
  Sex: Female

DRUGS (3)
  1. EXPAREL [Suspect]
     Active Substance: BUPIVACAINE
     Indication: Spinal operation
     Dosage: AT THE END OF SURGERY DURING CLOSURE
     Route: 030
     Dates: start: 20240205, end: 20240205
  2. BUPIVACAINE [Suspect]
     Active Substance: BUPIVACAINE
     Indication: Spinal operation
     Dosage: AT THE END OF SURGERY DURING CLOSURE
     Route: 030
     Dates: start: 20240205, end: 20240205
  3. LIDOCAINE [Concomitant]
     Active Substance: LIDOCAINE
     Indication: General anaesthesia
     Dosage: LESS THAN 1 MG/ML DURING THE INDUCTION OVER ONE HOUR PRIOR TO EXPAREL ADMINISTRATION
     Route: 042

REACTIONS (2)
  - Dysgeusia [Recovered/Resolved]
  - Tinnitus [Unknown]

NARRATIVE: CASE EVENT DATE: 20240205
